FAERS Safety Report 7483759-9 (Version None)
Quarter: 2011Q2

REPORT INFORMATION
  Report Type: 
  Country: None (occurrence: None)
  Receive Date: 20110517
  Receipt Date: 20110506
  Transmission Date: 20111010
  Serious: Yes (Death, Hospitalization)
  Sender: FDA-Public Use
  Company Number: PHHY2011AR16106

PATIENT
  Age: 88 Year
  Sex: Female

DRUGS (1)
  1. EXELON [Suspect]
     Indication: ABNORMAL BEHAVIOUR
     Dosage: 9.5 MG/24 HR
     Route: 062
     Dates: start: 20090301, end: 20100801

REACTIONS (3)
  - SEPSIS [None]
  - CARDIO-RESPIRATORY ARREST [None]
  - CONDITION AGGRAVATED [None]
